FAERS Safety Report 5233404-8 (Version None)
Quarter: 2007Q1

REPORT INFORMATION
  Report Type: 
  Country: None (occurrence: None)
  Receive Date: 20070206
  Receipt Date: 20070129
  Transmission Date: 20070707
  Serious: Yes (Other)
  Sender: FDA-Public Use
  Company Number: 234922

PATIENT
  Sex: Female

DRUGS (7)
  1. XOLAIR [Suspect]
     Indication: ASTHMA
     Dosage: SEE IMAGE
     Route: 058
     Dates: start: 20061108
  2. XOLAIR [Suspect]
     Indication: ASTHMA
     Dosage: SEE IMAGE
     Route: 058
     Dates: start: 20061201
  3. MEDICATION (UNK INGREDIENT) (GENERIC COMPONENT (S) NOT KNOWN) [Concomitant]
  4. SYMBICORT [Concomitant]
  5. ANTIBIOTICS (NOT SPECIFIED) (ANTIBIOTICS NOS) [Concomitant]
  6. DUOVENT (FENOTEROL, IPRATROPIUM BROMIDE) [Concomitant]
  7. SINGULAIR [Concomitant]

REACTIONS (10)
  - ASTHMA [None]
  - CONDITION AGGRAVATED [None]
  - HEADACHE [None]
  - MALAISE [None]
  - NO THERAPEUTIC RESPONSE [None]
  - RASH GENERALISED [None]
  - RASH PRURITIC [None]
  - RESPIRATORY DISORDER [None]
  - SINUSITIS [None]
  - SKIN REACTION [None]
